FAERS Safety Report 6989742-1 (Version None)
Quarter: 2010Q3

REPORT INFORMATION
  Report Type: 
  Country: None (occurrence: None)
  Receive Date: 20100916
  Receipt Date: 20100223
  Transmission Date: 20110219
  Serious: Yes (Other)
  Sender: FDA-Public Use
  Company Number: US-PFIZER INC-2010011499

PATIENT
  Sex: Female
  Weight: 107.3 kg

DRUGS (8)
  1. LYRICA [Suspect]
     Indication: PARAESTHESIA
     Dosage: UNK
     Route: 048
     Dates: start: 20080101
  2. LYRICA [Suspect]
     Indication: PAIN
  3. LYRICA [Suspect]
     Indication: MYALGIA
  4. LIPITOR [Concomitant]
     Indication: BLOOD CHOLESTEROL INCREASED
     Dosage: 10 MG, UNK
  5. ATENOLOL [Concomitant]
     Indication: HYPERTENSION
     Dosage: 25 MG, UNK
  6. TRIAMTERENE AND HYDROCHLOROTHIAZIDE [Concomitant]
     Dosage: UNK
  7. FUROSEMIDE [Concomitant]
     Dosage: 40 MG, UNK
  8. VIACTIV /USA/ [Concomitant]
     Dosage: 2 DF, 2X/DAY

REACTIONS (9)
  - ABNORMAL BEHAVIOUR [None]
  - CATARACT OPERATION [None]
  - CONFUSIONAL STATE [None]
  - DIZZINESS [None]
  - FATIGUE [None]
  - MUSCLE TWITCHING [None]
  - PAIN [None]
  - PARAESTHESIA [None]
  - VITAMIN D DECREASED [None]
